FAERS Safety Report 22356214 (Version 1)
Quarter: 2023Q2

REPORT INFORMATION
  Report Type: Spontaneous
  Country: TW (occurrence: TW)
  Receive Date: 20230523
  Receipt Date: 20230523
  Transmission Date: 20230721
  Serious: Yes (Death, Other)
  Sender: FDA-Public Use
  Company Number: TW-TAKEDA-2023TUS050581

PATIENT
  Age: 65 Year
  Sex: Male

DRUGS (2)
  1. MOBOCERTINIB [Suspect]
     Active Substance: MOBOCERTINIB
     Indication: Lung adenocarcinoma
     Dosage: UNK
     Route: 065
     Dates: start: 202206, end: 202211
  2. TS-1 [Suspect]
     Active Substance: GIMERACIL\OTERACIL\TEGAFUR
     Indication: Lung adenocarcinoma
     Dosage: UNK
     Route: 065
     Dates: start: 202212, end: 202301

REACTIONS (3)
  - Death [Fatal]
  - Metastases to central nervous system [Unknown]
  - Rash [Unknown]
